FAERS Safety Report 8681334 (Version 5)
Quarter: 2012Q4

REPORT INFORMATION
  Report Type: 
  Country: US (occurrence: US)
  Receive Date: 20120725
  Receipt Date: 20120924
  Transmission Date: 20130627
  Serious: Yes (Life-Threatening, Hospitalization, Disabling, Other)
  Sender: FDA-Public Use
  Company Number: US-009507513-2012SP011838

PATIENT

DRUGS (1)
  1. NUVARING [Suspect]
     Indication: CONTRACEPTION
     Dosage: UNK
     Dates: start: 20080918, end: 201003

REACTIONS (31)
  - Deep vein thrombosis [Unknown]
  - Pulmonary embolism [Unknown]
  - Pruritus [Unknown]
  - Phlebitis [Unknown]
  - Migraine [Not Recovered/Not Resolved]
  - Asthenia [Unknown]
  - Depression [Not Recovered/Not Resolved]
  - Asthma [Unknown]
  - Ovarian cyst [Unknown]
  - Heart rate irregular [Unknown]
  - Anxiety [Unknown]
  - Insomnia [Not Recovered/Not Resolved]
  - Spinal osteoarthritis [Unknown]
  - Scoliosis [Unknown]
  - Smear cervix abnormal [Recovered/Resolved]
  - Chest pain [Unknown]
  - Dyspnoea [Unknown]
  - Hepatic steatosis [Unknown]
  - Limb injury [Unknown]
  - Panic attack [Unknown]
  - Abdominal pain [Unknown]
  - Fall [Unknown]
  - Back pain [Unknown]
  - Ligament sprain [Unknown]
  - Headache [Unknown]
  - Laceration [Unknown]
  - Injury [Unknown]
  - Syncope [Recovered/Resolved]
  - Ovarian cyst ruptured [Unknown]
  - Hepatic steatosis [Unknown]
  - Bronchitis [Recovering/Resolving]
